FAERS Safety Report 7379355-4 (Version None)
Quarter: 2011Q1

REPORT INFORMATION
  Report Type: 
  Country: None (occurrence: None)
  Receive Date: 20110329
  Receipt Date: 20110318
  Transmission Date: 20110831
  Serious: No
  Sender: FDA-Public Use
  Company Number: US-BIOGENIDEC-2011BI009799

PATIENT
  Age: 31 Year
  Sex: Female

DRUGS (2)
  1. TYSABRI [Suspect]
     Indication: MULTIPLE SCLEROSIS
     Route: 042
     Dates: start: 20070411, end: 20090325
  2. TYSABRI [Suspect]
     Route: 042
     Dates: start: 20100216

REACTIONS (6)
  - CONTUSION [None]
  - DRUG INEFFECTIVE [None]
  - HYPOAESTHESIA [None]
  - EYE MOVEMENT DISORDER [None]
  - DIPLOPIA [None]
  - MULTIPLE SCLEROSIS [None]
